FAERS Safety Report 18595211 (Version 1)
Quarter: 2020Q4

REPORT INFORMATION
  Report Type: Report from Study
  Country: FR (occurrence: FR)
  Receive Date: 20201209
  Receipt Date: 20201209
  Transmission Date: 20210114
  Serious: Yes (Other)
  Sender: FDA-Public Use
  Company Number: FR-KYOWAKIRIN-2020BKK021213

PATIENT

DRUGS (2)
  1. BLINDED BUROSUMAB [Suspect]
     Active Substance: BUROSUMAB
     Indication: HEREDITARY HYPOPHOSPHATAEMIC RICKETS
     Dosage: 1 MG/KG, 1X/4 WEEKS
     Route: 058
  2. PLACEBO [Suspect]
     Active Substance: UNSPECIFIED INGREDIENT
     Indication: HEREDITARY HYPOPHOSPHATAEMIC RICKETS
     Dosage: 1 MG/KG, 1X/4 WEEKS
     Route: 058

REACTIONS (3)
  - Nephrocalcinosis [Unknown]
  - Adverse event [Unknown]
  - Hyperphosphataemia [Recovered/Resolved]
